FAERS Safety Report 6543938-1 (Version None)
Quarter: 2010Q1

REPORT INFORMATION
  Report Type: 
  Country: None (occurrence: None)
  Receive Date: 20100120
  Receipt Date: 20100108
  Transmission Date: 20100710
  Serious: Yes (Other)
  Sender: FDA-Public Use
  Company Number: TR-ELI_LILLY_AND_COMPANY-TR201001002098

PATIENT

DRUGS (4)
  1. HUMULIN 70/30 [Suspect]
     Indication: DIABETES MELLITUS
     Dosage: 16 IU, EACH MORNING
     Route: 064
     Dates: start: 20090929, end: 20090101
  2. HUMULIN 70/30 [Suspect]
     Dosage: 8 IU, EACH EVENING
     Route: 064
     Dates: start: 20090929, end: 20090101
  3. EKLIPS [Concomitant]
     Indication: HYPERTENSION
     Dosage: 1 D/F, DAILY (1/D)
     Route: 064
     Dates: start: 20080101
  4. GLUKOFEN [Concomitant]
     Indication: DIABETES MELLITUS
     Route: 064
     Dates: start: 20090801

REACTIONS (2)
  - DRUG EXPOSURE DURING PREGNANCY [None]
  - GROWTH RETARDATION [None]
